FAERS Safety Report 7571031-8 (Version None)
Quarter: 2011Q2

REPORT INFORMATION
  Report Type: 
  Country: None (occurrence: None)
  Receive Date: 20110624
  Receipt Date: 20110615
  Transmission Date: 20111010
  Serious: Yes (Other)
  Sender: FDA-Public Use
  Company Number: US-ROCHE-782961

PATIENT
  Sex: Female

DRUGS (2)
  1. RECLAST [Suspect]
     Dosage: FREQUENCY: YEARLY, FORM: INFUSION
     Route: 042
     Dates: start: 20080301
  2. BONIVA [Suspect]
     Route: 042
     Dates: end: 20071201

REACTIONS (2)
  - ANXIETY [None]
  - FEMUR FRACTURE [None]
